FAERS Safety Report 5143752-8 (Version None)
Quarter: 2006Q4

REPORT INFORMATION
  Report Type: 
  Country: None (occurrence: None)
  Receive Date: 20061106
  Receipt Date: 20061026
  Transmission Date: 20070319
  Serious: Yes (Hospitalization)
  Sender: FDA-Public Use
  Company Number: FR-JNJFOC-20061001758

PATIENT
  Age: 78 Year
  Sex: Male

DRUGS (9)
  1. REMICADE [Suspect]
     Indication: CROHN'S DISEASE
     Route: 042
  2. REMICADE [Suspect]
     Indication: ANKYLOSING SPONDYLITIS
     Dosage: 4 INFUSIONS
     Route: 042
  3. PENTASA [Concomitant]
     Route: 048
  4. SOLUPRED [Concomitant]
     Route: 048
  5. PERINDOPRIL ERBUMINE [Concomitant]
     Route: 048
  6. CARDENSIEL [Concomitant]
     Route: 048
  7. LASIX [Concomitant]
     Route: 048
  8. OMIX [Concomitant]
     Route: 048
  9. PREVISCAN [Concomitant]
     Route: 065

REACTIONS (2)
  - BASAL CELL CARCINOMA [None]
  - MALIGNANT MELANOMA [None]
